FAERS Safety Report 6326711-9 (Version None)
Quarter: 2009Q3

REPORT INFORMATION
  Report Type: 
  Country: None (occurrence: None)
  Receive Date: 20090825
  Receipt Date: 20090818
  Transmission Date: 20100115
  Serious: Yes (Hospitalization)
  Sender: FDA-Public Use
  Company Number: PHHY2009FR34652

PATIENT
  Sex: Female

DRUGS (5)
  1. FEMARA [Suspect]
     Dosage: 2.5 MG, QD
     Dates: start: 20060101, end: 20081101
  2. PREVISCAN [Suspect]
     Indication: PHLEBITIS
     Dosage: 20 MG, UNK
  3. ENDOTELON [Suspect]
     Indication: LYMPHOEDEMA
  4. FOSAVANCE [Suspect]
     Dosage: UNK
     Dates: start: 20081022
  5. PROTELOS (STRONTIUM RANELATE) [Concomitant]
     Dosage: UNK
     Dates: end: 20081022

REACTIONS (4)
  - ABDOMINAL DISCOMFORT [None]
  - ABDOMINAL PAIN UPPER [None]
  - HEPATITIS [None]
  - TRANSAMINASES INCREASED [None]
